FAERS Safety Report 12668262 (Version 4)
Quarter: 2016Q4

REPORT INFORMATION
  Report Type: Report from Study
  Country: TR (occurrence: TR)
  Receive Date: 20160819
  Receipt Date: 20161205
  Transmission Date: 20170207
  Serious: Yes (Death, Hospitalization, Other)
  Sender: FDA-Public Use
  Company Number: TR-GILEAD-2016-0228756

PATIENT
  Age: 61 Year
  Sex: Male

DRUGS (2)
  1. LEDIPASVIR/SOFOSBUVIR [Suspect]
     Active Substance: LEDIPASVIR\SOFOSBUVIR
     Indication: HEPATITIS C
     Dosage: 1 DF, UNK
     Route: 048
     Dates: start: 20151219
  2. SORAFENIB [Concomitant]
     Active Substance: SORAFENIB

REACTIONS (2)
  - Infection [Unknown]
  - Hepatic failure [Fatal]

NARRATIVE: CASE EVENT DATE: 201605
